FAERS Safety Report 7789699-X (Version None)
Quarter: 2011Q3

REPORT INFORMATION
  Report Type: 
  Country: None (occurrence: None)
  Receive Date: 20110930
  Receipt Date: 20110927
  Transmission Date: 20111222
  Serious: Yes (Hospitalization)
  Sender: FDA-Public Use
  Company Number: US-BRISTOL-MYERS SQUIBB COMPANY-16082109

PATIENT

DRUGS (1)
  1. YERVOY [Suspect]

REACTIONS (2)
  - SPLENIC NEOPLASM MALIGNANCY UNSPECIFIED [None]
  - FLANK PAIN [None]
